FAERS Safety Report 23405436 (Version 1)
Quarter: 2024Q1

REPORT INFORMATION
  Report Type: Spontaneous
  Country: JP (occurrence: JP)
  Receive Date: 20240116
  Receipt Date: 20240116
  Transmission Date: 20240410
  Serious: Yes (Other)
  Sender: FDA-Public Use
  Company Number: JP-SA-SAC20240115000177

PATIENT
  Age: 72 Year
  Sex: Male

DRUGS (1)
  1. OXALIPLATIN [Suspect]
     Active Substance: OXALIPLATIN
     Dosage: INJECTION
     Route: 065

REACTIONS (1)
  - Staphylococcal scalded skin syndrome [Recovering/Resolving]
